FAERS Safety Report 13469209 (Version 2)
Quarter: 2017Q3

REPORT INFORMATION
  Report Type: Spontaneous
  Country: GB (occurrence: GB)
  Receive Date: 20170421
  Receipt Date: 20170717
  Transmission Date: 20171127
  Serious: Yes (Other)
  Sender: FDA-Public Use
  Company Number: GB-009507513-1704GBR003888

PATIENT
  Sex: Female

DRUGS (1)
  1. NEXPLANON [Suspect]
     Active Substance: ETONOGESTREL
     Dosage: UNK
     Route: 059
     Dates: start: 20170211

REACTIONS (5)
  - Antidepressant therapy [Unknown]
  - Vomiting [Unknown]
  - Nausea [Unknown]
  - Menorrhagia [Unknown]
  - Syncope [Unknown]

NARRATIVE: CASE EVENT DATE: 2017
